FAERS Safety Report 18012130 (Version 1)
Quarter: 2020Q3

REPORT INFORMATION
  Report Type: Spontaneous
  Country: US (occurrence: US)
  Receive Date: 20200713
  Receipt Date: 20200713
  Transmission Date: 20201103
  Serious: No
  Sender: FDA-Public Use
  Company Number: US-DENTSPLY-2019SCDP000407

PATIENT
  Age: 31 Year
  Sex: Male

DRUGS (2)
  1. LIDOCAINE. [Suspect]
     Active Substance: LIDOCAINE
     Dosage: 1 MILLIGRAM PER MINUTE
     Route: 042
  2. LIDOCAINE. [Suspect]
     Active Substance: LIDOCAINE
     Indication: PAIN
     Dosage: 150 MILLIGRAM, BID
     Route: 042

REACTIONS (2)
  - Nervous system disorder [Unknown]
  - Drug level increased [Unknown]
